FAERS Safety Report 16937542 (Version 6)
Quarter: 2020Q2

REPORT INFORMATION
  Report Type: Spontaneous
  Country: DE (occurrence: DE)
  Receive Date: 20191018
  Receipt Date: 20200615
  Transmission Date: 20200713
  Serious: Yes (Life-Threatening, Hospitalization, Other)
  Sender: FDA-Public Use
  Company Number: NVSC2019DE007946

PATIENT
  Sex: Male
  Weight: 100 kg

DRUGS (11)
  1. VALSARTAN. [Suspect]
     Active Substance: VALSARTAN
     Indication: HYPERTENSION
     Dosage: 160 MG, QD (MORNING)
     Route: 065
     Dates: start: 20120521, end: 201804
  2. OXALIPLATIN. [Suspect]
     Active Substance: OXALIPLATIN
     Indication: SIGNET-RING CELL CARCINOMA
     Dosage: 5 OT, CYCLIC
     Route: 065
  3. LERCANIDIPINE [Concomitant]
     Active Substance: LERCANIDIPINE
     Indication: PRODUCT USED FOR UNKNOWN INDICATION
     Dosage: 10 MG, BID (MORNING AND EVENING)
     Route: 065
  4. ALLOPURINOL. [Concomitant]
     Active Substance: ALLOPURINOL
     Indication: HYPERURICAEMIA
     Dosage: 300 UNK
     Route: 048
  5. ELIQUIS [Concomitant]
     Active Substance: APIXABAN
     Indication: PRODUCT USED FOR UNKNOWN INDICATION
     Dosage: 5 MG, QD (MORNING AND EVENING)
     Route: 065
  6. TAMSULOSIN [Concomitant]
     Active Substance: TAMSULOSIN
     Indication: BENIGN PROSTATIC HYPERPLASIA
     Dosage: 0.4 OT, QD
     Route: 048
  7. VITAMIN B12 [Concomitant]
     Active Substance: CYANOCOBALAMIN
     Indication: PRODUCT USED FOR UNKNOWN INDICATION
     Dosage: 100 MG, QW (WEDNESDAY)
     Route: 065
  8. FERRO SANOL [Concomitant]
     Active Substance: FERROUS GLYCINE SULFATE
     Indication: PRODUCT USED FOR UNKNOWN INDICATION
     Dosage: 1 DF, BID (MORNING AND EVENING)
     Route: 048
  9. FOLIC ACID. [Concomitant]
     Active Substance: FOLIC ACID
     Indication: PRODUCT USED FOR UNKNOWN INDICATION
     Dosage: 5 MG, BIW
     Route: 065
  10. PANTOPRAZOLE [Concomitant]
     Active Substance: PANTOPRAZOLE
     Indication: PRODUCT USED FOR UNKNOWN INDICATION
     Dosage: 140 MG, BID (MORNING AND EVENING)
     Route: 048
  11. PARACETAMOL [Concomitant]
     Active Substance: ACETAMINOPHEN
     Indication: PAIN
     Dosage: 500 MG, TID
     Route: 065

REACTIONS (43)
  - Deep vein thrombosis [Recovered/Resolved with Sequelae]
  - Chest pain [Recovered/Resolved]
  - Neuropathy peripheral [Unknown]
  - Ulnar nerve injury [Unknown]
  - Night sweats [Recovered/Resolved]
  - Paraesthesia [Unknown]
  - Pulmonary embolism [Recovered/Resolved with Sequelae]
  - Dehiscence [Recovered/Resolved with Sequelae]
  - Polyneuropathy [Unknown]
  - Oesophageal ulcer [Unknown]
  - Pancreatic failure [Unknown]
  - Fatigue [Not Recovered/Not Resolved]
  - Depression [Recovered/Resolved]
  - Pyrexia [Unknown]
  - Hernia [Unknown]
  - Anxiety [Not Recovered/Not Resolved]
  - Lymphadenopathy mediastinal [Unknown]
  - Post inflammatory pigmentation change [Unknown]
  - Memory impairment [Unknown]
  - Internal haemorrhage [Recovered/Resolved]
  - Acute kidney injury [Unknown]
  - Asthenia [Recovered/Resolved]
  - Impaired healing [Recovered/Resolved with Sequelae]
  - Dyspnoea [Recovered/Resolved with Sequelae]
  - Fear [Not Recovered/Not Resolved]
  - Palpitations [Unknown]
  - Social avoidant behaviour [Not Recovered/Not Resolved]
  - Sensory disturbance [Not Recovered/Not Resolved]
  - Disturbance in attention [Not Recovered/Not Resolved]
  - Hepatic seroma [Unknown]
  - Gastrointestinal adenocarcinoma [Unknown]
  - Iron deficiency anaemia [Recovered/Resolved with Sequelae]
  - Sleep disorder [Recovered/Resolved]
  - Vascular pseudoaneurysm [Unknown]
  - Hepatic steatosis [Unknown]
  - Merycism [Unknown]
  - Dyspepsia [Recovered/Resolved]
  - Ulcerative gastritis [Unknown]
  - Hyperhidrosis [Recovered/Resolved]
  - Depressed mood [Not Recovered/Not Resolved]
  - Anhedonia [Not Recovered/Not Resolved]
  - Coronary artery disease [Unknown]
  - Dizziness [Unknown]

NARRATIVE: CASE EVENT DATE: 2016
